FAERS Safety Report 10045898 (Version 1)
Quarter: 2014Q1

REPORT INFORMATION
  Report Type: Spontaneous
  Country: BR (occurrence: BR)
  Receive Date: 20140329
  Receipt Date: 20140329
  Transmission Date: 20141002
  Serious: Yes (Other)
  Sender: FDA-Public Use
  Company Number: BR-ACCORD-022796

PATIENT
  Age: 62 Year
  Sex: Female
  Weight: 43 kg

DRUGS (6)
  1. PACLITAXEL/PACLITAXEL LIPOSOME [Suspect]
     Indication: BREAST CANCER
     Route: 042
     Dates: start: 20140122, end: 20140122
  2. HYDROCORTISONE [Concomitant]
     Route: 042
     Dates: start: 20140122, end: 20140122
  3. RANITIDINE [Concomitant]
     Dates: start: 20140122, end: 20140122
  4. ONDANSETRON [Concomitant]
     Dates: start: 20140122, end: 20140122
  5. DIMENHYDRINATE [Concomitant]
     Dates: start: 20140122, end: 20140122
  6. DEXAMETHASONE [Concomitant]
     Dates: start: 20140122, end: 20140122

REACTIONS (5)
  - Chest pain [Unknown]
  - Toxicity to various agents [Unknown]
  - Nausea [Unknown]
  - Malaise [Unknown]
  - Respiratory failure [Unknown]
